FAERS Safety Report 13818477 (Version 1)
Quarter: 2017Q3

REPORT INFORMATION
  Report Type: Spontaneous
  Country: US (occurrence: US)
  Receive Date: 20170731
  Receipt Date: 20170731
  Transmission Date: 20171127
  Serious: No
  Sender: FDA-Public Use
  Company Number: US-ROCHE-633603

PATIENT
  Age: 54 Year
  Sex: Male

DRUGS (2)
  1. BONIVA [Suspect]
     Active Substance: IBANDRONATE SODIUM
     Indication: OSTEOPOROSIS
     Route: 065
  2. PSYCHOPHARMACEUTICALS NOS [Concomitant]
     Dosage: 5-6 PSYCHOTROPIC MEDS
     Route: 065

REACTIONS (3)
  - Hepatic function abnormal [Unknown]
  - Procedural complication [Unknown]
  - Abscess [Unknown]
